FAERS Safety Report 19444470 (Version 1)
Quarter: 2021Q2

REPORT INFORMATION
  Report Type: Spontaneous
  Country: US (occurrence: US)
  Receive Date: 20210621
  Receipt Date: 20210621
  Transmission Date: 20210717
  Serious: Yes (Other)
  Sender: FDA-Public Use
  Company Number: US-ANIPHARMA-2021-US-012160

PATIENT
  Age: 62 Year
  Sex: Male
  Weight: 127 kg

DRUGS (12)
  1. ACETAMINOPHEN. [Concomitant]
     Active Substance: ACETAMINOPHEN
  2. BENZONATATE. [Concomitant]
     Active Substance: BENZONATATE
  3. LIDOCAINE. [Concomitant]
     Active Substance: LIDOCAINE
  4. CARVEDILOL. [Concomitant]
     Active Substance: CARVEDILOL
  5. DEXTROSE. [Concomitant]
     Active Substance: DEXTROSE
  6. REMDESIVIR. [Suspect]
     Active Substance: REMDESIVIR
     Indication: COVID-19 PNEUMONIA
     Dosage: 200 MG ONCE; THEN 100 MG DAILY
     Route: 042
  7. DEXAMETHASONE (NON?SPECIFIC) [Suspect]
     Active Substance: DEXAMETHASONE
     Indication: COVID-19 PNEUMONIA
     Dosage: 6 MG DAILY
     Route: 048
  8. GLUCOSE [Concomitant]
     Active Substance: DEXTROSE
  9. WARFARIN [Suspect]
     Active Substance: WARFARIN
     Indication: COAGULOPATHY
     Dosage: 11.25 MG DAILY
  10. GLUCAGON. [Concomitant]
     Active Substance: GLUCAGON
  11. LOPERAMIDE [Concomitant]
     Active Substance: LOPERAMIDE
  12. ALBUTEROL. [Concomitant]
     Active Substance: ALBUTEROL

REACTIONS (2)
  - Drug interaction [Unknown]
  - International normalised ratio increased [Unknown]
